FAERS Safety Report 9275213 (Version 1)
Quarter: 2013Q2

REPORT INFORMATION
  Report Type: Report from Study
  Country: IT (occurrence: IT)
  Receive Date: 20130506
  Receipt Date: 20130506
  Transmission Date: 20140414
  Serious: Yes (Death, Other)
  Sender: FDA-Public Use
  Company Number: IT-CELGENEUS-083-50794-11031385

PATIENT
  Sex: 0

DRUGS (3)
  1. VIDAZA [Suspect]
     Indication: MYELODYSPLASTIC SYNDROME
     Dosage: 75 MILLIGRAM/SQ. METER
     Route: 058
     Dates: start: 200809, end: 201002
  2. VIDAZA [Suspect]
     Dosage: 75 MILLIGRAM/SQ. METER
     Route: 058
  3. BLOOD [Concomitant]
     Indication: SUPPORTIVE CARE
     Dosage: MEDIAN REQUIREMENT OF 4 UNITS/MONTHLY
     Route: 041

REACTIONS (21)
  - Death [Fatal]
  - Graft versus host disease [Fatal]
  - Injury [Fatal]
  - Cachexia [Fatal]
  - Cerebral haemorrhage [Fatal]
  - Lung neoplasm malignant [Fatal]
  - Pneumonia [Unknown]
  - Sepsis [Fatal]
  - Infection [Fatal]
  - Neutropenia [Unknown]
  - Thrombocytopenia [Unknown]
  - Respiratory distress [Fatal]
  - Gastrointestinal haemorrhage [Fatal]
  - Septic shock [Fatal]
  - Injection site erythema [Unknown]
  - Asthenia [Unknown]
  - Diarrhoea [Unknown]
  - Constipation [Unknown]
  - Pyrexia [Unknown]
  - Anaemia [Unknown]
  - Nausea [Unknown]
